FAERS Safety Report 9280260 (Version 2)
Quarter: 2013Q2

REPORT INFORMATION
  Report Type: Report from Study
  Country: US (occurrence: US)
  Receive Date: 20130509
  Receipt Date: 20130521
  Transmission Date: 20140414
  Serious: No
  Sender: FDA-Public Use
  Company Number: US-VERTEX PHARMACEUTICALS INC-2013-005828

PATIENT
  Age: 16 Year
  Sex: Male
  Weight: 58 kg

DRUGS (9)
  1. VX-770 [Suspect]
     Indication: CYSTIC FIBROSIS
     Dosage: 150 MG, BID
     Route: 048
     Dates: start: 20120426
  2. CREON [Concomitant]
  3. OMEPRAZOLE [Concomitant]
  4. PULMOZYME [Concomitant]
  5. XOPENEX [Concomitant]
  6. PROBIOTIC [Concomitant]
  7. VITAMIN D [Concomitant]
  8. SOURCECF PEDIATRIC [Concomitant]
  9. IBUPROFEN [Concomitant]

REACTIONS (6)
  - Sinusitis [Recovered/Resolved]
  - Fatigue [Unknown]
  - Treatment noncompliance [Unknown]
  - Nasal polyps [Unknown]
  - Nasal septum deviation [Unknown]
  - Headache [Unknown]
